FAERS Safety Report 6078240-8 (Version None)
Quarter: 2009Q1

REPORT INFORMATION
  Report Type: 
  Country: None (occurrence: None)
  Receive Date: 20090213
  Receipt Date: 20090203
  Transmission Date: 20090719
  Serious: Yes (Death)
  Sender: FDA-Public Use
  Company Number: US-ELI_LILLY_AND_COMPANY-US200902001157

PATIENT
  Age: 58 Year
  Sex: Male

DRUGS (8)
  1. ZYPREXA [Suspect]
     Dosage: 15 MG, 2/D
  2. FLUOXETINE HYDROCHLORIDE [Suspect]
  3. ALPRAZOLAM [Concomitant]
  4. DEPAKOTE [Concomitant]
  5. FAMOTIDINE [Concomitant]
  6. HYDROCODONE BITARTRATE [Concomitant]
  7. AUGMENTIN                               /SCH/ [Concomitant]
  8. AMITRIPTYLINE HCL [Concomitant]

REACTIONS (2)
  - DRUG TOXICITY [None]
  - OVERDOSE [None]
